FAERS Safety Report 17104857 (Version 1)
Quarter: 2019Q4

REPORT INFORMATION
  Report Type: Spontaneous
  Country: US (occurrence: US)
  Receive Date: 20191108
  Receipt Date: 20191108
  Transmission Date: 20200122
  Serious: Yes (Hospitalization)
  Sender: FDA-Public Use
  Company Number: None

PATIENT
  Age: 52 Year
  Sex: Female

DRUGS (19)
  1. TRAMADOL. [Concomitant]
     Active Substance: TRAMADOL
  2. METOPROLOL SUCCINATE. [Concomitant]
     Active Substance: METOPROLOL SUCCINATE
  3. HYDRALAZINE [Concomitant]
     Active Substance: HYDRALAZINE HYDROCHLORIDE
  4. FUROSEMIDE. [Concomitant]
     Active Substance: FUROSEMIDE
  5. VITAMIN D [Concomitant]
     Active Substance: VITAMIN D NOS
  6. SPIRIVA [Concomitant]
     Active Substance: TIOTROPIUM BROMIDE MONOHYDRATE
  7. ISONIAZID. [Concomitant]
     Active Substance: ISONIAZID
  8. PROAIR HFA [Concomitant]
     Active Substance: ALBUTEROL SULFATE
  9. SEVELAMER [Concomitant]
     Active Substance: SEVELAMER
  10. PRIFTIN [Concomitant]
     Active Substance: RIFAPENTINE
  11. CALCITRIOL. [Concomitant]
     Active Substance: CALCITRIOL
  12. GABAPENTIN. [Concomitant]
     Active Substance: GABAPENTIN
  13. NOVOLOG [Concomitant]
     Active Substance: INSULIN ASPART
  14. AMITRIPTYLINE [Concomitant]
     Active Substance: AMITRIPTYLINE
  15. INCRUSE ELPT INH [Concomitant]
  16. DILT-XR [Concomitant]
     Active Substance: DILTIAZEM
  17. ARANESP [Suspect]
     Active Substance: DARBEPOETIN ALFA
     Indication: CHRONIC KIDNEY DISEASE
     Dosage: ?          OTHER DOSE:2 SYRS;?
     Route: 058
  18. LEVEMIR [Concomitant]
     Active Substance: INSULIN DETEMIR
  19. ARANESP [Suspect]
     Active Substance: DARBEPOETIN ALFA
     Indication: ANAEMIA OF CHRONIC DISEASE

REACTIONS (2)
  - Arthralgia [None]
  - Procedural pain [None]

NARRATIVE: CASE EVENT DATE: 20190915
